FAERS Safety Report 9934942 (Version 1)
Quarter: 2014Q1

REPORT INFORMATION
  Report Type: Spontaneous
  Country: CA (occurrence: CA)
  Receive Date: 20140228
  Receipt Date: 20140228
  Transmission Date: 20141002
  Serious: Yes (Hospitalization)
  Sender: FDA-Public Use
  Company Number: PHHY2014CA023568

PATIENT
  Age: 79 Year
  Sex: Male

DRUGS (7)
  1. MEMANTINE HYDROCHLORIDE [Suspect]
     Indication: DEMENTIA ALZHEIMER^S TYPE
     Dosage: 20 MG, BID
  2. CITALOPRAM [Suspect]
     Indication: DEMENTIA ALZHEIMER^S TYPE
     Dosage: 20 MG, DAILY
  3. RISPERIDONE [Suspect]
     Indication: DEMENTIA ALZHEIMER^S TYPE
     Dosage: 2 MG, BID
  4. DONEPEZIL [Suspect]
     Indication: DEMENTIA ALZHEIMER^S TYPE
     Dosage: 10 MG, DAILY
  5. HALOPERIDOL [Suspect]
  6. QUETIAPINE [Suspect]
  7. TRYPTOPHAN [Suspect]
     Indication: DEMENTIA ALZHEIMER^S TYPE

REACTIONS (2)
  - Dementia [Unknown]
  - Delirium [Recovered/Resolved]
